FAERS Safety Report 8920614 (Version 2)
Quarter: 2012Q4

REPORT INFORMATION
  Report Type: Report from Study
  Country: CA (occurrence: CA)
  Receive Date: 20121121
  Receipt Date: 20121213
  Transmission Date: 20130627
  Serious: Yes (Hospitalization, Other)
  Sender: FDA-Public Use
  Company Number: CA-ABBOTT-12P-028-1009289-00

PATIENT
  Sex: Male
  Weight: 77.18 kg

DRUGS (14)
  1. LUPRON DEPOT [Suspect]
     Indication: PROSTATE CANCER
     Dates: start: 20101216, end: 20121123
  2. METFORMIN [Concomitant]
     Indication: PRODUCT USED FOR UNKNOWN INDICATION
  3. FLOMAX [Concomitant]
     Indication: PRODUCT USED FOR UNKNOWN INDICATION
  4. TRIMEBUTINE [Concomitant]
     Indication: PRODUCT USED FOR UNKNOWN INDICATION
  5. METOPROLOL [Concomitant]
     Indication: PRODUCT USED FOR UNKNOWN INDICATION
  6. LANTUS INSULIN [Concomitant]
     Indication: PRODUCT USED FOR UNKNOWN INDICATION
  7. ZYPREXA [Concomitant]
     Indication: PRODUCT USED FOR UNKNOWN INDICATION
  8. RAMIPRIL [Concomitant]
     Indication: PRODUCT USED FOR UNKNOWN INDICATION
  9. NEXIUM [Concomitant]
     Indication: PRODUCT USED FOR UNKNOWN INDICATION
  10. NAPROXEN [Concomitant]
     Indication: PRODUCT USED FOR UNKNOWN INDICATION
  11. PROPANOLOL [Concomitant]
     Indication: PRODUCT USED FOR UNKNOWN INDICATION
  12. SUPEUDOL [Concomitant]
     Indication: PRODUCT USED FOR UNKNOWN INDICATION
  13. DIAMICRON [Concomitant]
     Indication: PRODUCT USED FOR UNKNOWN INDICATION
  14. METHEPTAZINE [Concomitant]
     Indication: PRODUCT USED FOR UNKNOWN INDICATION

REACTIONS (2)
  - Cardiac disorder [Unknown]
  - Cardiac enzymes increased [Unknown]
